FAERS Safety Report 23671970 (Version 1)
Quarter: 2024Q1

REPORT INFORMATION
  Report Type: Spontaneous
  Country: US (occurrence: US)
  Receive Date: 20240326
  Receipt Date: 20240326
  Transmission Date: 20240409
  Serious: No
  Sender: FDA-Public Use
  Company Number: US-ALCON LABORATORIES-ALC2023US002996

PATIENT
  Age: 81 Year
  Sex: Female

DRUGS (2)
  1. PATADAY ONCE DAILY RELIEF [Suspect]
     Active Substance: OLOPATADINE HYDROCHLORIDE
     Dosage: 1 DROP IN EACH EYE, ONCE/SINGLE IN THE MORNING
     Route: 047
  2. PATADAY ONCE DAILY RELIEF [Suspect]
     Active Substance: OLOPATADINE HYDROCHLORIDE
     Indication: Hypersensitivity
     Dosage: 1 DROP IN LEFT EYE, ONCE/SINGLE
     Route: 047
     Dates: start: 20230612, end: 20230612

REACTIONS (2)
  - Product delivery mechanism issue [Unknown]
  - Eye irritation [Recovered/Resolved]

NARRATIVE: CASE EVENT DATE: 20230612
